FAERS Safety Report 18680304 (Version 1)
Quarter: 2020Q4

REPORT INFORMATION
  Report Type: Spontaneous
  Country: GB (occurrence: GB)
  Receive Date: 20201229
  Receipt Date: 20201229
  Transmission Date: 20210114
  Serious: Yes (Disabling, Other)
  Sender: FDA-Public Use
  Company Number: GB-ASCEND THERAPEUTICS US, LLC-2103598

PATIENT
  Age: 33 Year
  Sex: Female

DRUGS (4)
  1. STEMETIL (PROCHLORPERAZINE MESILATE), UNKNOWN?INDICATION FOR USE: DRUG [Concomitant]
     Route: 065
  2. OESTROGEL (ESTRADIOL) [Suspect]
     Active Substance: ESTRADIOL
     Route: 061
     Dates: start: 20201201, end: 20201207
  3. ESTROGEL [Suspect]
     Active Substance: ESTRADIOL
  4. ESTROGEL [Suspect]
     Active Substance: ESTRADIOL
     Indication: HYSTERECTOMY
     Route: 061
     Dates: start: 20201201, end: 20201207

REACTIONS (3)
  - Euphoric mood [Recovered/Resolved with Sequelae]
  - Impulsive behaviour [Recovered/Resolved with Sequelae]
  - Restless legs syndrome [Recovered/Resolved with Sequelae]

NARRATIVE: CASE EVENT DATE: 20201201
